FAERS Safety Report 14169854 (Version 3)
Quarter: 2018Q1

REPORT INFORMATION
  Report Type: Spontaneous
  Country: US (occurrence: US)
  Receive Date: 20171108
  Receipt Date: 20180308
  Transmission Date: 20180508
  Serious: No
  Sender: FDA-Public Use
  Company Number: US-GLAXOSMITHKLINE-US2017170149

PATIENT
  Sex: Female

DRUGS (1)
  1. INCRUSE ELLIPTA [Suspect]
     Active Substance: UMECLIDINIUM BROMIDE
     Indication: PRODUCT USED FOR UNKNOWN INDICATION
     Dosage: 1 PUFF(S), 1D
     Dates: start: 201708

REACTIONS (2)
  - Wrong technique in device usage process [Unknown]
  - Product quality issue [Unknown]
